FAERS Safety Report 21711666 (Version 1)
Quarter: 2022Q4

REPORT INFORMATION
  Report Type: Spontaneous
  Country: US (occurrence: US)
  Receive Date: 20221212
  Receipt Date: 20221212
  Transmission Date: 20230113
  Serious: No
  Sender: FDA-Public Use
  Company Number: US-GSK-US2022AMR184161

PATIENT
  Age: 45 Year
  Sex: Female

DRUGS (1)
  1. NUCALA [Suspect]
     Active Substance: MEPOLIZUMAB
     Indication: Gastrointestinal disorder
     Dosage: 100 MG, Z, EVERY 28 DAYS, 3 DOSES

REACTIONS (2)
  - Intermenstrual bleeding [Unknown]
  - Product use in unapproved indication [Unknown]
